FAERS Safety Report 21925686 (Version 4)
Quarter: 2023Q2

REPORT INFORMATION
  Report Type: Spontaneous
  Country: US (occurrence: US)
  Receive Date: 20230130
  Receipt Date: 20230503
  Transmission Date: 20230722
  Serious: No
  Sender: FDA-Public Use
  Company Number: US-AMGEN-USASP2023014413

PATIENT
  Age: 63 Year
  Sex: Female

DRUGS (5)
  1. OTEZLA [Suspect]
     Active Substance: APREMILAST
     Indication: Psoriasis
     Dosage: 30 MILLIGRAM, BID
     Route: 048
     Dates: start: 20210223
  2. OTEZLA [Suspect]
     Active Substance: APREMILAST
     Dosage: 30 MILLIGRAM, BID
     Route: 048
  3. ATORVASTATIN [Concomitant]
     Active Substance: ATORVASTATIN
     Dosage: 10 MILLIGRAM
     Route: 065
  4. SYNTHROID [Concomitant]
     Active Substance: LEVOTHYROXINE SODIUM
     Dosage: 100 MICROGRAM
     Route: 065
  5. HYDROCHLOROTHIAZIDE\VALSARTAN [Concomitant]
     Active Substance: HYDROCHLOROTHIAZIDE\VALSARTAN
     Dosage: UNK (160-12.5)
     Route: 065

REACTIONS (3)
  - Therapy non-responder [Unknown]
  - Product dose omission issue [Unknown]
  - Infection [Not Recovered/Not Resolved]

NARRATIVE: CASE EVENT DATE: 20230101
